FAERS Safety Report 7227147-9 (Version None)
Quarter: 2011Q1

REPORT INFORMATION
  Report Type: 
  Country: None (occurrence: None)
  Receive Date: 20110114
  Receipt Date: 20110111
  Transmission Date: 20110831
  Serious: Yes (Hospitalization)
  Sender: FDA-Public Use
  Company Number: FR-ROCHE-752736

PATIENT
  Sex: Male

DRUGS (10)
  1. RIVOTRIL [Suspect]
     Dosage: DOSE:2.5MG/ML
     Route: 048
     Dates: end: 20100301
  2. MYSOLINE [Suspect]
     Indication: ESSENTIAL TREMOR
     Route: 048
     Dates: end: 20100301
  3. ACETAMINOPHEN AND TRAMADOL HCL [Concomitant]
  4. KEPPRA [Suspect]
     Indication: ESSENTIAL TREMOR
     Route: 048
     Dates: start: 20100201
  5. KEPPRA [Suspect]
     Dosage: INCREASED DOSAGE
     Route: 048
  6. NEXIUM [Concomitant]
     Dosage: IN EVENING
  7. OMEXEL [Concomitant]
  8. COUMADIN [Concomitant]
     Dosage: IN EVENING
  9. FORLAX [Concomitant]
     Dosage: 2 SACHETS IF NEEDED
  10. HEPTAMYL [Concomitant]

REACTIONS (2)
  - SOMNOLENCE [None]
  - BRONCHIAL OBSTRUCTION [None]
